FAERS Safety Report 7435157-1 (Version None)
Quarter: 2011Q2

REPORT INFORMATION
  Report Type: 
  Country: None (occurrence: None)
  Receive Date: 20110425
  Receipt Date: 20110414
  Transmission Date: 20111010
  Serious: Yes (Other)
  Sender: FDA-Public Use
  Company Number: SE-ASTRAZENECA-2011SE21630

PATIENT
  Age: 63 Year
  Sex: Female

DRUGS (9)
  1. SERETIDE DISKUS FORTE [Suspect]
     Indication: ASTHMA
     Dosage: 50 UG/500 UG, 2X2 DF DAILY
     Route: 055
     Dates: start: 20090909
  2. SERETIDE DISKUS FORTE [Suspect]
     Dosage: 50 UG/500 UG, 1X2 DF DAILY
     Route: 055
  3. SOBRIL [Concomitant]
  4. OMEPRAZOLE [Concomitant]
  5. FLUTIDE NASAL [Concomitant]
     Dosage: SUSPENSION 50 UG/DOSE
     Route: 045
  6. BRICANYL [Concomitant]
     Dosage: 0.5 MG/DOSE
     Route: 055
  7. PULMICORT [Suspect]
     Indication: ASTHMA
     Dosage: 400 MIKROGRAM/DOSE, 2X2 DF DAILY
     Route: 055
     Dates: start: 20060508, end: 20090909
  8. ATACAND [Concomitant]
     Route: 048
  9. PREDNISOLONE [Concomitant]

REACTIONS (2)
  - OVERDOSE [None]
  - ADRENAL INSUFFICIENCY [None]
